FAERS Safety Report 4773975-9 (Version None)
Quarter: 2005Q3

REPORT INFORMATION
  Report Type: 
  Country: None (occurrence: None)
  Receive Date: 20050919
  Receipt Date: 20050908
  Transmission Date: 20060218
  Serious: Yes (Other)
  Sender: FDA-Public Use
  Company Number: 2005-08-1080

PATIENT
  Age: 50 Year
  Sex: Male
  Weight: 80.7403 kg

DRUGS (13)
  1. PEG-INTRON [Suspect]
     Indication: HEPATITIS C
     Dosage: 150 MCG QWK SUBCUTANEOUS; ^0.25^ QWK SUBCUTANEOUS; 150 MCG QWK SUBCUTANEOUS
     Route: 058
     Dates: start: 20040206, end: 20040824
  2. PEG-INTRON [Suspect]
     Indication: HEPATITIS C
     Dosage: 150 MCG QWK SUBCUTANEOUS; ^0.25^ QWK SUBCUTANEOUS; 150 MCG QWK SUBCUTANEOUS
     Route: 058
     Dates: start: 20040825, end: 20040908
  3. PEG-INTRON [Suspect]
     Indication: HEPATITIS C
     Dosage: 150 MCG QWK SUBCUTANEOUS; ^0.25^ QWK SUBCUTANEOUS; 150 MCG QWK SUBCUTANEOUS
     Route: 058
     Dates: start: 20040909, end: 20050103
  4. REBETOL [Suspect]
     Indication: HEPATITIS C
     Dosage: 1200 MG QD ORAL; 800 MG QD ORAL; 1000 MG QD ORAL; 1200 MG QD ORAL
     Route: 048
     Dates: start: 20040206, end: 20040824
  5. REBETOL [Suspect]
     Indication: HEPATITIS C
     Dosage: 1200 MG QD ORAL; 800 MG QD ORAL; 1000 MG QD ORAL; 1200 MG QD ORAL
     Route: 048
     Dates: start: 20040825, end: 20040908
  6. REBETOL [Suspect]
     Indication: HEPATITIS C
     Dosage: 1200 MG QD ORAL; 800 MG QD ORAL; 1000 MG QD ORAL; 1200 MG QD ORAL
     Route: 048
     Dates: start: 20040909, end: 20040926
  7. REBETOL [Suspect]
     Indication: HEPATITIS C
     Dosage: 1200 MG QD ORAL; 800 MG QD ORAL; 1000 MG QD ORAL; 1200 MG QD ORAL
     Route: 048
     Dates: start: 20040927, end: 20050103
  8. AMBIEN [Concomitant]
     Dosage: PRN
  9. ATIVAN [Concomitant]
  10. PHENERGAN [Concomitant]
     Dosage: PRN
  11. IBUPROFEN [Concomitant]
     Dosage: PRN
  12. TOPICAL CORTICOSTEROIDS (NOS) CREAM [Concomitant]
  13. PUVA [Concomitant]

REACTIONS (18)
  - CONDITION AGGRAVATED [None]
  - CONFUSIONAL STATE [None]
  - DEPRESSION [None]
  - DISTURBANCE IN ATTENTION [None]
  - DYSKINESIA [None]
  - FATIGUE [None]
  - FEELING ABNORMAL [None]
  - GAIT DISTURBANCE [None]
  - HAEMATOCRIT DECREASED [None]
  - HALLUCINATION, VISUAL [None]
  - INSOMNIA [None]
  - MEMORY IMPAIRMENT [None]
  - MUSCLE TWITCHING [None]
  - NEPHROLITHIASIS [None]
  - NERVOUS SYSTEM DISORDER [None]
  - PLATELET COUNT DECREASED [None]
  - PSORIASIS [None]
  - WHITE BLOOD CELL COUNT DECREASED [None]
